FAERS Safety Report 8886045 (Version 1)
Quarter: 2012Q4

REPORT INFORMATION
  Report Type: 
  Country: IT (occurrence: IT)
  Receive Date: 20121105
  Receipt Date: 20121105
  Transmission Date: 20130627
  Serious: Yes (Hospitalization)
  Sender: FDA-Public Use
  Company Number: IT-PFIZER INC-2012274304

PATIENT
  Age: 54 Year
  Sex: Female
  Weight: 60 kg

DRUGS (5)
  1. RELPAX [Suspect]
     Indication: COMMON MIGRAINE
     Dosage: 40 mg, total
     Route: 048
     Dates: start: 20121029, end: 20121029
  2. ELONTRIL [Suspect]
     Indication: DEPRESSION
     Dosage: 150 mg, 1x/day
     Route: 048
     Dates: start: 20100101
  3. PAROXETINE [Concomitant]
     Dosage: 20 mg, UNK
  4. INEGY [Concomitant]
     Dosage: 1 DF, UNK
  5. CARDIOASPIRIN [Concomitant]
     Dosage: 1 DF, UNK

REACTIONS (6)
  - Confusional state [Recovering/Resolving]
  - Migraine [Recovering/Resolving]
  - Vertigo [Recovering/Resolving]
  - Paraesthesia [Recovering/Resolving]
  - Epilepsy [Recovering/Resolving]
  - Electrocardiogram ST-T change [Recovering/Resolving]
